FAERS Safety Report 4938548-3 (Version None)
Quarter: 2006Q1

REPORT INFORMATION
  Report Type: 
  Country: None (occurrence: None)
  Receive Date: 20060309
  Receipt Date: 20060302
  Transmission Date: 20060701
  Serious: Yes (Other)
  Sender: FDA-Public Use
  Company Number: NO-AVENTIS-200612087GDDC

PATIENT
  Age: 22 Year
  Sex: Female

DRUGS (4)
  1. FLAGYL [Suspect]
     Indication: CAESAREAN SECTION
     Dates: start: 20060124, end: 20060124
  2. FENTANYL CITRATE [Suspect]
     Indication: CAESAREAN SECTION
     Dates: start: 20060124, end: 20060124
  3. LIDOCAINE AND EPINEPHRINE [Suspect]
     Indication: CAESAREAN SECTION
     Dates: start: 20060124, end: 20060124
  4. PENTREXYL [Suspect]
     Indication: CAESAREAN SECTION
     Dosage: DOSE: 2 G
     Dates: start: 20060124, end: 20060124

REACTIONS (2)
  - HYPOTENSION [None]
  - OXYGEN SATURATION DECREASED [None]
